FAERS Safety Report 10450596 (Version 1)
Quarter: 2014Q3

REPORT INFORMATION
  Report Type: Spontaneous
  Country: JP (occurrence: JP)
  Receive Date: 20140912
  Receipt Date: 20140912
  Transmission Date: 20150326
  Serious: No
  Sender: FDA-Public Use
  Company Number: PHHY2012JP136209

PATIENT
  Age: 10 Year
  Sex: Female

DRUGS (4)
  1. TASIGNA [Suspect]
     Active Substance: NILOTINIB
     Dosage: 800 MG PER DAY
  2. TASIGNA [Suspect]
     Active Substance: NILOTINIB
     Indication: CHRONIC MYELOID LEUKAEMIA
     Dosage: 400 MG PER DAY
     Dates: start: 20100728
  3. TASIGNA [Suspect]
     Active Substance: NILOTINIB
     Dosage: 600 MG PER DAY
  4. URSODEOXYCHOLIC ACID [Concomitant]
     Active Substance: URSODIOL
     Dosage: UNK UKN, UNK

REACTIONS (3)
  - Electrocardiogram QT prolonged [Unknown]
  - Hepatic function abnormal [Unknown]
  - Nausea [Unknown]
